FAERS Safety Report 10242002 (Version 1)
Quarter: 2014Q2

REPORT INFORMATION
  Report Type: Spontaneous
  Country: US (occurrence: None)
  Receive Date: 20140613
  Receipt Date: 20140613
  Transmission Date: 20141212
  Serious: Yes (Hospitalization)
  Sender: FDA-Public Use
  Company Number: 2014US003373

PATIENT
  Age: 72 Year
  Sex: Female

DRUGS (7)
  1. ICLUSIG (PONATINIB) TABLET [Suspect]
     Indication: CHRONIC MYELOID LEUKAEMIA
     Route: 048
     Dates: start: 20140515, end: 201405
  2. PREMPRO (ESTROGENS CONJUGATED, MEDROXYPROGESTERONE ACETATE) [Concomitant]
  3. AMLODIPINE BESYLATE [Concomitant]
  4. PANTOPRAZOLE SODIUM [Concomitant]
  5. LISINOPRIL [Concomitant]
  6. SYNTHROID (LEVOTHYROXINE SODIUM) [Concomitant]
  7. TRAMADOL HCL [Concomitant]

REACTIONS (5)
  - Pancreatic disorder [None]
  - Myocardial infarction [None]
  - Abdominal pain [None]
  - Chest pain [None]
  - Constipation [None]
